FAERS Safety Report 23921480 (Version 1)
Quarter: 2024Q2

REPORT INFORMATION
  Report Type: Spontaneous
  Country: CA (occurrence: CA)
  Receive Date: 20240530
  Receipt Date: 20240530
  Transmission Date: 20240716
  Serious: Yes (Life-Threatening, Hospitalization)
  Sender: FDA-Public Use
  Company Number: CA-MYLANLABS-2024M1049105

PATIENT
  Age: 67 Year
  Sex: Female
  Weight: 53 kg

DRUGS (2)
  1. EPIVAL [Suspect]
     Active Substance: DIVALPROEX SODIUM
     Indication: Epilepsy
     Dosage: 375 MILLIGRAM (AS REQUIRED)
     Route: 048
  2. EPIVAL [Suspect]
     Active Substance: DIVALPROEX SODIUM
     Dosage: 500 MILLIGRAM, BID (2 EVERY 1 DAY)
     Route: 048

REACTIONS (8)
  - Affective disorder [Unknown]
  - Balance disorder [Unknown]
  - Confusional state [Unknown]
  - Gait disturbance [Unknown]
  - Loss of personal independence in daily activities [Unknown]
  - Oedema peripheral [Unknown]
  - Cognitive disorder [Unknown]
  - Tremor [Unknown]
